FAERS Safety Report 13319844 (Version 2)
Quarter: 2017Q1

REPORT INFORMATION
  Report Type: Spontaneous
  Country: US (occurrence: US)
  Receive Date: 20170310
  Receipt Date: 20170310
  Transmission Date: 20170428
  Serious: Yes (Other)
  Sender: FDA-Public Use
  Company Number: US-TEVA-748670USA

PATIENT
  Age: 82 Year
  Sex: Female
  Weight: 70.82 kg

DRUGS (9)
  1. CLARITIN [Concomitant]
     Active Substance: LORATADINE
  2. SYSTANE BALANCE EYE [Concomitant]
  3. ALLOPURINOL. [Concomitant]
     Active Substance: ALLOPURINOL
  4. CLOPIDOGREL [Concomitant]
     Active Substance: CLOPIDOGREL BISULFATE
  5. SYNRIBO [Suspect]
     Active Substance: OMACETAXINE MEPESUCCINATE
     Indication: NEOPLASM MALIGNANT
     Dosage: HOME ADMINISTRATION
     Route: 042
     Dates: start: 201409
  6. LEVOTHYROXINE. [Concomitant]
     Active Substance: LEVOTHYROXINE
  7. FUROSEMIDE. [Concomitant]
     Active Substance: FUROSEMIDE
  8. CALCIUM CITRATE [Concomitant]
     Active Substance: CALCIUM CITRATE
  9. VITAMIN B COMPLEX [Concomitant]
     Active Substance: CYANOCOBALAMIN\DEXPANTHENOL\NIACINAMIDE\PYRIDOXINE HYDROCHLORIDE\RIBOFLAVIN 5^-PHOSPHATE SODIUM\THIAMINE HYDROCHLORIDE\VITAMIN B COMPLEX

REACTIONS (3)
  - Blindness [Unknown]
  - Visual impairment [Unknown]
  - Anaemia [Unknown]

NARRATIVE: CASE EVENT DATE: 201612
